FAERS Safety Report 16942872 (Version 1)
Quarter: 2019Q4

REPORT INFORMATION
  Report Type: Spontaneous
  Country: GB (occurrence: GB)
  Receive Date: 20191021
  Receipt Date: 20191021
  Transmission Date: 20200122
  Serious: Yes (Other)
  Sender: FDA-Public Use
  Company Number: GB-MYLANLABS-2019M1098412

PATIENT
  Age: 67 Year
  Sex: Female

DRUGS (2)
  1. ESOMEPRAZOLE. [Suspect]
     Active Substance: ESOMEPRAZOLE MAGNESIUM
     Indication: HIATUS HERNIA
     Dosage: 80 MILLIGRAM DAILY;
     Route: 048
     Dates: start: 1995
  2. METFORMIN [Concomitant]
     Active Substance: METFORMIN HYDROCHLORIDE
     Dosage: UNK

REACTIONS (4)
  - Asthma [Recovered/Resolved]
  - Malaise [Recovered/Resolved]
  - Throat tightness [Recovered/Resolved]
  - Product substitution issue [Unknown]
